FAERS Safety Report 21202080 (Version 3)
Quarter: 2023Q2

REPORT INFORMATION
  Report Type: Spontaneous
  Country: US (occurrence: US)
  Receive Date: 20220811
  Receipt Date: 20230417
  Transmission Date: 20230722
  Serious: No
  Sender: FDA-Public Use
  Company Number: US-LUPIN PHARMACEUTICALS INC.-2022-10130

PATIENT
  Sex: Male

DRUGS (1)
  1. ALBUTEROL SULFATE [Suspect]
     Active Substance: ALBUTEROL SULFATE
     Indication: Product used for unknown indication
     Dosage: UNK, (2 PUFFS 4 TIMES A DAY OR AS NEEDED)
     Dates: start: 202207

REACTIONS (4)
  - Product lot number issue [Unknown]
  - Product expiration date issue [Unknown]
  - Wrong technique in product usage process [Unknown]
  - No adverse event [Unknown]
